FAERS Safety Report 9469131 (Version 1)
Quarter: 2013Q3

REPORT INFORMATION
  Report Type: Spontaneous
  Country: US (occurrence: US)
  Receive Date: 20130821
  Receipt Date: 20130821
  Transmission Date: 20140515
  Serious: No
  Sender: FDA-Public Use
  Company Number: US-NOVEN-13US007097

PATIENT
  Age: 54 Year
  Sex: Female

DRUGS (4)
  1. MINIVELLE [Suspect]
     Indication: HOT FLUSH
     Dosage: 0.075 MG, 2/WK
     Route: 062
     Dates: start: 20130606, end: 201306
  2. MINIVELLE [Suspect]
     Dosage: 0.05 MG, 2/WK
     Route: 062
     Dates: start: 201306, end: 20130610
  3. MINIVELLE [Suspect]
     Dosage: 0.075 MG, 2/WK
     Route: 062
     Dates: start: 20130611, end: 20130612
  4. PROGESTIN [Concomitant]
     Indication: PRODUCT USED FOR UNKNOWN INDICATION
     Dosage: UNK

REACTIONS (8)
  - Palpitations [Recovered/Resolved]
  - Flushing [Recovered/Resolved]
  - Panic reaction [Recovered/Resolved]
  - Breast swelling [Recovering/Resolving]
  - Blood oestrogen increased [Recovering/Resolving]
  - Hot flush [Recovered/Resolved]
  - Migraine [Recovered/Resolved]
  - Drug dose omission [Not Recovered/Not Resolved]
